FAERS Safety Report 14419323 (Version 6)
Quarter: 2019Q1

REPORT INFORMATION
  Report Type: Report from Study
  Country: US (occurrence: US)
  Receive Date: 20180122
  Receipt Date: 20190301
  Transmission Date: 20190417
  Serious: Yes (Hospitalization, Other)
  Sender: FDA-Public Use
  Company Number: US-TAKEDA-2018MPI000529

PATIENT
  Age: 71 Year
  Sex: Male

DRUGS (2)
  1. NINLARO [Suspect]
     Active Substance: IXAZOMIB CITRATE
     Indication: PLASMA CELL MYELOMA
     Dosage: 3 MG, UNK
     Route: 048
     Dates: start: 20170829
  2. BORTEZOMIB. [Suspect]
     Active Substance: BORTEZOMIB
     Indication: PRODUCT USED FOR UNKNOWN INDICATION
     Dosage: UNK
     Route: 065

REACTIONS (10)
  - Platelet count abnormal [Unknown]
  - Asthenia [Unknown]
  - Plasma cell myeloma [Unknown]
  - Protein total increased [Unknown]
  - Haemoglobin decreased [Unknown]
  - Product dose omission [Unknown]
  - Retinal disorder [Unknown]
  - Product blister packaging issue [Unknown]
  - Adverse drug reaction [Unknown]
  - Product physical issue [Unknown]

NARRATIVE: CASE EVENT DATE: 201801
